FAERS Safety Report 5161454-9 (Version None)
Quarter: 2006Q4

REPORT INFORMATION
  Report Type: 
  Country: None (occurrence: None)
  Receive Date: 20061130
  Receipt Date: 20060810
  Transmission Date: 20070319
  Serious: Yes (Other)
  Sender: FDA-Public Use
  Company Number: US-GLAXOSMITHKLINE-A0616319A

PATIENT
  Age: 18 Year
  Sex: Female

DRUGS (4)
  1. WELLBUTRIN [Suspect]
     Dosage: 300MG PER DAY
     Route: 048
     Dates: start: 20060103, end: 20060920
  2. COCAINE [Suspect]
     Route: 055
  3. ABILIFY [Concomitant]
     Route: 048
     Dates: start: 20060103
  4. ASACOL [Concomitant]
     Indication: CROHN'S DISEASE
     Route: 048

REACTIONS (1)
  - CONVULSION [None]
